FAERS Safety Report 8015405-X (Version None)
Quarter: 2011Q4

REPORT INFORMATION
  Report Type: 
  Country: None (occurrence: None)
  Receive Date: 20111230
  Receipt Date: 20111220
  Transmission Date: 20120403
  Serious: Yes (Hospitalization, Disabling, Other)
  Sender: FDA-Public Use
  Company Number: US-BRISTOL-MYERS SQUIBB COMPANY-16309379

PATIENT
  Sex: Male

DRUGS (1)
  1. ZERIT [Suspect]

REACTIONS (4)
  - DEFORMITY [None]
  - AXILLARY MASS [None]
  - MASS [None]
  - BREAST MASS [None]
